FAERS Safety Report 7194366-X (Version None)
Quarter: 2010Q4

REPORT INFORMATION
  Report Type: 
  Country: None (occurrence: None)
  Receive Date: 20101223
  Receipt Date: 20101216
  Transmission Date: 20110411
  Serious: Yes (Other)
  Sender: FDA-Public Use
  Company Number: US-ROCHE-491602

PATIENT
  Sex: Female
  Weight: 54.4 kg

DRUGS (4)
  1. BONIVA [Suspect]
     Route: 048
     Dates: start: 20070101, end: 20100930
  2. BONIVA [Suspect]
     Route: 048
     Dates: start: 20101204
  3. METFORMIN [Concomitant]
     Dosage: PATIENT REPORTED TAKING ^METAFORMIN.^
     Dates: start: 20061201
  4. ASPIRIN [Concomitant]
     Dosage: PATIENT REPORTED TAKING ^BABY ASPIRIN DAILY.^

REACTIONS (12)
  - BREAST MASS [None]
  - CLAVICLE FRACTURE [None]
  - HYPOAESTHESIA [None]
  - INFLUENZA [None]
  - INSOMNIA [None]
  - MULTIPLE FRACTURES [None]
  - MUSCULAR WEAKNESS [None]
  - NASOPHARYNGITIS [None]
  - OEDEMA PERIPHERAL [None]
  - PAIN IN EXTREMITY [None]
  - PARAESTHESIA [None]
  - UPPER LIMB FRACTURE [None]
